FAERS Safety Report 10525652 (Version 2)
Quarter: 2014Q4

REPORT INFORMATION
  Report Type: Report from Study
  Country: IT (occurrence: IT)
  Receive Date: 20141017
  Receipt Date: 20141111
  Transmission Date: 20150528
  Serious: Yes (Hospitalization)
  Sender: FDA-Public Use
  Company Number: IT-GILEAD-2014-0118346

PATIENT
  Age: 66 Year
  Sex: Male
  Weight: 60 kg

DRUGS (5)
  1. PREDNISONE. [Concomitant]
     Active Substance: PREDNISONE
     Indication: ERYTHEMA
     Dosage: UNK
     Dates: start: 20140510, end: 20140721
  2. RITUXIMAB [Suspect]
     Active Substance: RITUXIMAB
     Indication: NON-HODGKIN^S LYMPHOMA UNSPECIFIED HISTOLOGY INDOLENT
     Dosage: 701.25 MG, ONCE
     Route: 042
     Dates: start: 20140306, end: 20140616
  3. IDELALISIB [Suspect]
     Active Substance: IDELALISIB
     Indication: NON-HODGKIN^S LYMPHOMA UNSPECIFIED HISTOLOGY INDOLENT
     Dosage: 150 MG, BID
     Route: 048
     Dates: start: 20140306, end: 20140725
  4. BENDAMUSTINE [Suspect]
     Active Substance: BENDAMUSTINE
     Indication: NON-HODGKIN^S LYMPHOMA UNSPECIFIED HISTOLOGY INDOLENT
     Dosage: 168.3 MG, ONCE
     Route: 042
     Dates: start: 20140306, end: 20140617
  5. KENACORT                           /00031901/ [Concomitant]
     Indication: ERYTHEMA
     Dosage: UNK
     Dates: start: 20140721, end: 20140808

REACTIONS (1)
  - Dermatitis psoriasiform [Unknown]

NARRATIVE: CASE EVENT DATE: 20140924
